FAERS Safety Report 21201717 (Version 3)
Quarter: 2022Q3

REPORT INFORMATION
  Report Type: Spontaneous
  Country: US (occurrence: US)
  Receive Date: 20220811
  Receipt Date: 20220907
  Transmission Date: 20221026
  Serious: No
  Sender: FDA-Public Use
  Company Number: US-ORGANON-O2208USA000933

PATIENT
  Age: 38 Year
  Sex: Female
  Weight: 93.8 kg

DRUGS (8)
  1. NEXPLANON [Suspect]
     Active Substance: ETONOGESTREL
     Indication: Contraception
     Dosage: 1 IMPLANT OF 68MG ONCE IN LEFT UPPER ARM (BACK)
     Route: 059
     Dates: start: 20220805
  2. TYLENOL [Concomitant]
     Active Substance: ACETAMINOPHEN
     Indication: Pain
     Dosage: 2 DOSAGE FORM, Q4H; DISPENSE: 50 TABLET
     Route: 048
     Dates: start: 20210729
  3. VITAMIN D3 [Concomitant]
     Active Substance: CHOLECALCIFEROL
     Dosage: 1 DOSAGE FORM, QD (400 UNIT)
     Route: 048
     Dates: start: 20200212
  4. FERROUS GLUCONATE [Concomitant]
     Active Substance: FERROUS GLUCONATE
     Dosage: 1 DOSAGE FORM, QD; DISPENSE: 30 TABLET; REFILL 2
     Route: 048
     Dates: start: 20220617
  5. FERROUS SULFATE [Concomitant]
     Active Substance: FERROUS SULFATE
     Dosage: 1 DOSAGE FORM, QD; ; DISPENSE: 90 TABLET; REFILL 2
     Route: 048
     Dates: start: 20220118
  6. CLARITIN [Concomitant]
     Active Substance: LORATADINE
     Dosage: 1 DOSAGE FORM, QD; DISPENSED 30 TABLET; REFILL 11
     Route: 048
     Dates: start: 20220630
  7. METOCLOPRAMIDE [Concomitant]
     Active Substance: METOCLOPRAMIDE
     Dosage: 1 DOSAGE FORM, TID FOR 14 DAYS; DISPENSED 42 TABLET
     Route: 048
     Dates: start: 20220805, end: 20220819
  8. MINERALS\VITAMINS [Concomitant]
     Active Substance: MINERALS\VITAMINS
     Dosage: UNK
     Route: 048

REACTIONS (6)
  - Peripheral swelling [Recovered/Resolved]
  - Limb discomfort [Recovered/Resolved]
  - Fatigue [Unknown]
  - Gastrointestinal disorder [Unknown]
  - Suppressed lactation [Unknown]
  - Maternal exposure during breast feeding [Unknown]

NARRATIVE: CASE EVENT DATE: 20220806
